FAERS Safety Report 5292223-7 (Version None)
Quarter: 2007Q2

REPORT INFORMATION
  Report Type: 
  Country: None (occurrence: None)
  Receive Date: 20070410
  Receipt Date: 20070330
  Transmission Date: 20071010
  Serious: Yes (Hospitalization)
  Sender: FDA-Public Use
  Company Number: US-ROCHE-490552

PATIENT
  Age: 64 Year
  Sex: Female

DRUGS (4)
  1. CAPECITABINE [Suspect]
     Route: 048
     Dates: start: 20061123
  2. LAPATINIB [Suspect]
     Route: 048
     Dates: start: 20061123
  3. LEVETIRACETAM [Concomitant]
  4. WARFARIN SODIUM [Concomitant]

REACTIONS (1)
  - CONVULSION [None]
